FAERS Safety Report 6702443-X (Version None)
Quarter: 2010Q2

REPORT INFORMATION
  Report Type: 
  Country: None (occurrence: None)
  Receive Date: 20100429
  Receipt Date: 20100421
  Transmission Date: 20101027
  Serious: Yes (Hospitalization)
  Sender: FDA-Public Use
  Company Number: B0599149A

PATIENT
  Age: 41 Year
  Sex: Male

DRUGS (2)
  1. KIVEXA [Suspect]
     Indication: HIV INFECTION
     Dosage: 1TAB PER DAY
     Route: 048
     Dates: start: 20091004, end: 20091004
  2. ISENTRESS [Suspect]
     Indication: HIV INFECTION
     Dosage: 2TAB PER DAY
     Route: 048
     Dates: start: 20091004, end: 20091004

REACTIONS (4)
  - ANAPHYLACTIC REACTION [None]
  - HYPERSENSITIVITY [None]
  - HYPOAESTHESIA ORAL [None]
  - PARAESTHESIA [None]
